FAERS Safety Report 10234991 (Version 1)
Quarter: 2014Q1

REPORT INFORMATION
  Report Type: Spontaneous
  Country: US (occurrence: None)
  Receive Date: 20140306
  Receipt Date: 20140306
  Transmission Date: 20141002
  Serious: Yes (Other)
  Sender: FDA-Public Use
  Company Number: 163-21880-13044393

PATIENT
  Age: 59 Year
  Sex: Male
  Weight: 97.52 kg

DRUGS (1)
  1. REVLIMID ( LENALIDOMIDE) ( 25 MILLIGRAM, CAPSULES) [Suspect]
     Indication: PLASMA CELL MYELOMA
     Dosage: 25 MG, 1 IN 1 D, PO
     Route: 048
     Dates: start: 201110

REACTIONS (4)
  - Drug hypersensitivity [None]
  - Pruritus [None]
  - Rash [None]
  - Drug ineffective [None]
